FAERS Safety Report 21210653 (Version 1)
Quarter: 2022Q3

REPORT INFORMATION
  Report Type: Spontaneous
  Country: GB (occurrence: GB)
  Receive Date: 20220815
  Receipt Date: 20220815
  Transmission Date: 20221026
  Serious: Yes (Disabling)
  Sender: FDA-Public Use
  Company Number: GB-NOVARTISPH-NVSC2022GB183561

PATIENT
  Age: 67 Year
  Sex: Female

DRUGS (2)
  1. LUTATHERA [Suspect]
     Active Substance: LUTETIUM OXODOTREOTIDE LU-177
     Indication: Neuroendocrine carcinoma metastatic
     Dosage: 100 MBQ (X 4-INTERVAL 8-12 WEEK)
     Route: 042
     Dates: start: 20200608, end: 20201119
  2. LUTATHERA [Suspect]
     Active Substance: LUTETIUM OXODOTREOTIDE LU-177
     Dosage: 100 MBQ (X 4-INTERVAL 8-12 WEEK)
     Route: 042
     Dates: start: 20201119

REACTIONS (2)
  - Inappropriate schedule of product administration [Unknown]
  - Lymphoedema [Unknown]

NARRATIVE: CASE EVENT DATE: 20201119
